FAERS Safety Report 8434863-X (Version None)
Quarter: 2012Q2

REPORT INFORMATION
  Report Type: 
  Country: None (occurrence: None)
  Receive Date: 20120614
  Receipt Date: 20120604
  Transmission Date: 20120825
  Serious: Yes (Hospitalization)
  Sender: FDA-Public Use
  Company Number: US-BAYER-2012-056799

PATIENT
  Age: 27 Year
  Sex: Female
  Weight: 94.331 kg

DRUGS (27)
  1. OMEPRAZOLE [Concomitant]
  2. CONCERTA [Concomitant]
     Dosage: 1 TAB DAILY
  3. TORADOL [Concomitant]
     Route: 042
  4. SENNA S [Concomitant]
  5. MARCAINE [Concomitant]
     Route: 061
  6. ANCEF [Concomitant]
     Dosage: 2 MG, UNK
     Route: 042
  7. METHYLPHENIDATE [Concomitant]
     Dosage: 20 MG TAB
  8. ALIGN (PROBIOTIC) [Concomitant]
     Dosage: DAILY
  9. MULTI-VITAMIN [Concomitant]
     Dosage: UNK UNK, QD
  10. LIDOCAINE [Concomitant]
     Route: 061
  11. PROPOFOL [Concomitant]
  12. NAPROSYN [Concomitant]
     Dosage: 500 MG, BID, 1-2 DAYS BEFORE MENSES
  13. ROCURONIUM BROMIDE [Concomitant]
  14. HYDROCODONE BITARTRATE + ACETAMINOPHEN [Concomitant]
  15. VERSED [Concomitant]
     Dosage: 2 MG, UNK
     Route: 042
  16. NAPROXEN [Concomitant]
     Dosage: 500 MG, UNK
  17. VICODIN [Concomitant]
     Indication: PAIN
     Dosage: 5-500 MG, PRN
  18. FENTANYL [Concomitant]
     Route: 042
  19. DILAUDID [Concomitant]
     Route: 042
  20. LAMOTRIGINE [Concomitant]
     Dosage: 25 MG, UNK
  21. ROXICET [Concomitant]
  22. ZOFRAN [Concomitant]
  23. LITHIUM CARBONATE [Concomitant]
     Dosage: 300 MG, BID
  24. RITALIN [Concomitant]
  25. DROSPIRENONE AND ETHINYL ESTRADIOL [Suspect]
  26. LAMICTAL [Concomitant]
     Dosage: 25 MG, BID
  27. DEXAMETHASONE [Concomitant]

REACTIONS (2)
  - PORTAL VEIN THROMBOSIS [None]
  - CHOLECYSTITIS CHRONIC [None]
